FAERS Safety Report 25635796 (Version 1)
Quarter: 2025Q3

REPORT INFORMATION
  Report Type: Report from Study
  Country: US (occurrence: US)
  Receive Date: 20250802
  Receipt Date: 20250802
  Transmission Date: 20251020
  Serious: Yes (Other)
  Sender: ALEXION PHARMACEUTICALS
  Company Number: US-AstraZeneca-CH-00919866A

PATIENT
  Sex: Female

DRUGS (1)
  1. CAPIVASERTIB [Suspect]
     Active Substance: CAPIVASERTIB
     Dosage: 160 MILLIGRAM,AKE 1 TABLET BY MOUTH TWICE A DAY FOR 4 DAYS, THEN 3 DAYS OFF. REPEAT EVERY WEEK

REACTIONS (3)
  - Muscle atrophy [Unknown]
  - Hypoglycaemia [Unknown]
  - Urinary tract infection [Unknown]
